FAERS Safety Report 4284197-2 (Version None)
Quarter: 2004Q1

REPORT INFORMATION
  Report Type: 
  Country: None (occurrence: None)
  Receive Date: 20040130
  Receipt Date: 20040119
  Transmission Date: 20041129
  Serious: Yes (Other)
  Sender: FDA-Public Use
  Company Number: GB-JNJFOC-20031200293

PATIENT
  Age: 52 Year
  Sex: Female
  Weight: 68.9 kg

DRUGS (1)
  1. REMICADE [Suspect]
     Dosage: 200 MG, INTRAVENOUS
     Route: 042
     Dates: start: 20020601, end: 20021201

REACTIONS (1)
  - OVARIAN CANCER [None]
